FAERS Safety Report 4309380-9 (Version None)
Quarter: 2004Q1

REPORT INFORMATION
  Report Type: 
  Country: None (occurrence: None)
  Receive Date: 20040302
  Receipt Date: 20040218
  Transmission Date: 20041129
  Serious: Yes (Hospitalization)
  Sender: FDA-Public Use
  Company Number: US-ROCHE-359388

PATIENT
  Age: 60 Year
  Sex: Female

DRUGS (2)
  1. SORIATANE [Suspect]
     Route: 048
     Dates: start: 20040211, end: 20040217
  2. SORIATANE [Suspect]
     Route: 048

REACTIONS (3)
  - CARDIAC FAILURE CONGESTIVE [None]
  - LUNG INFILTRATION [None]
  - PNEUMONIA [None]
